FAERS Safety Report 10466771 (Version 5)
Quarter: 2015Q1

REPORT INFORMATION
  Report Type: Spontaneous
  Country: US (occurrence: US)
  Receive Date: 20140922
  Receipt Date: 20150330
  Transmission Date: 20150720
  Serious: Yes (Other)
  Sender: FDA-Public Use
  Company Number: US-PFIZER INC-2014260091

PATIENT
  Sex: Male

DRUGS (1)
  1. LYRICA [Suspect]
     Active Substance: PREGABALIN
     Dosage: UNK

REACTIONS (10)
  - Malaise [Unknown]
  - Urinary incontinence [Unknown]
  - Pain [Unknown]
  - Drug withdrawal syndrome [Unknown]
  - Chills [Unknown]
  - Influenza [Unknown]
  - Hyperhidrosis [Unknown]
  - Bronchitis [Not Recovered/Not Resolved]
  - Bedridden [Unknown]
  - Hernia [Unknown]

NARRATIVE: CASE EVENT DATE: 20150128
